FAERS Safety Report 9626790 (Version 1)
Quarter: 2013Q4

REPORT INFORMATION
  Report Type: Spontaneous
  Country: DE (occurrence: DE)
  Receive Date: 20131016
  Receipt Date: 20131016
  Transmission Date: 20140711
  Serious: Yes (Congenital Anomaly)
  Sender: FDA-Public Use
  Company Number: DE-GLAXOSMITHKLINE-D0081333A

PATIENT
  Age: 0 Day
  Sex: Male
  Weight: 3.1 kg

DRUGS (1)
  1. LAMOTRIGINE [Suspect]
     Indication: EPILEPSY
     Dosage: 50MG PER DAY
     Route: 064

REACTIONS (2)
  - Skin malformation [Recovering/Resolving]
  - Foetal exposure during pregnancy [Unknown]
